FAERS Safety Report 21890847 (Version 1)
Quarter: 2023Q1

REPORT INFORMATION
  Report Type: Spontaneous
  Country: US (occurrence: None)
  Receive Date: 20230119
  Receipt Date: 20230119
  Transmission Date: 20230418
  Serious: Yes (Death, Other)
  Sender: FDA-Public Use
  Company Number: None

PATIENT
  Age: 64 Year
  Sex: Male
  Weight: 105.23 kg

DRUGS (4)
  1. ABILIFY [Suspect]
     Active Substance: ARIPIPRAZOLE
     Dosage: FREQUENCY : DAILY;?
     Dates: start: 20200520
  2. TAMOSULSIN [Concomitant]
  3. PROPRANAOLOL [Concomitant]
  4. PAROXETINE [Concomitant]
     Active Substance: PAROXETINE

REACTIONS (2)
  - Tardive dyskinesia [None]
  - Drug ineffective [None]
